FAERS Safety Report 5937540-X (Version None)
Quarter: 2008Q4

REPORT INFORMATION
  Report Type: 
  Country: None (occurrence: None)
  Receive Date: 20081029
  Receipt Date: 20081021
  Transmission Date: 20090506
  Serious: Yes (Hospitalization)
  Sender: FDA-Public Use
  Company Number: 2008BI028371

PATIENT
  Age: 30 Year
  Sex: Female

DRUGS (5)
  1. TYSABRI [Suspect]
     Indication: MULTIPLE SCLEROSIS
     Dosage: 300 MG; QM; IV
     Route: 042
     Dates: start: 20080613, end: 20080801
  2. CIPRO [Concomitant]
  3. ZANAFLEX [Concomitant]
  4. AVONEX [Concomitant]
  5. COPAXONE [Concomitant]

REACTIONS (6)
  - ALOPECIA [None]
  - ASTHENIA [None]
  - BLOOD GLUCOSE DECREASED [None]
  - FUNGAL INFECTION [None]
  - URINARY TRACT INFECTION [None]
  - VISION BLURRED [None]
